FAERS Safety Report 7628132-5 (Version None)
Quarter: 2011Q3

REPORT INFORMATION
  Report Type: 
  Country: None (occurrence: None)
  Receive Date: 20110720
  Receipt Date: 20110720
  Transmission Date: 20111222
  Serious: Yes (Other)
  Sender: FDA-Public Use
  Company Number: None

PATIENT
  Sex: Male

DRUGS (1)
  1. ZYTIGA [Suspect]
     Dosage: 1000MG (4 TABS) DAILY PO
     Route: 048
     Dates: start: 20110628, end: 20110719

REACTIONS (1)
  - BLOOD PRESSURE INCREASED [None]
